FAERS Safety Report 9924807 (Version 1)
Quarter: 2014Q1

REPORT INFORMATION
  Report Type: Spontaneous
  Country: US (occurrence: None)
  Receive Date: 20140224
  Receipt Date: 20140224
  Transmission Date: 20141002
  Serious: No
  Sender: FDA-Public Use
  Company Number: None

PATIENT
  Age: 18 Year
  Sex: Female
  Weight: 50.8 kg

DRUGS (2)
  1. VICKS NYQUIL [Suspect]
     Indication: NASOPHARYNGITIS
     Route: 048
     Dates: start: 20140220, end: 20140220
  2. VICKS NYQUIL [Suspect]
     Indication: NASAL CONGESTION
     Route: 048
     Dates: start: 20140220, end: 20140220

REACTIONS (3)
  - Amnesia [None]
  - Dizziness [None]
  - Vision blurred [None]
